FAERS Safety Report 5385389-1 (Version None)
Quarter: 2007Q3

REPORT INFORMATION
  Report Type: 
  Country: None (occurrence: None)
  Receive Date: 20070712
  Receipt Date: 20070702
  Transmission Date: 20080115
  Serious: Yes (Other)
  Sender: FDA-Public Use
  Company Number: GB-ALLERGAN-0707304US

PATIENT
  Sex: Female

DRUGS (13)
  1. OCUFEN [Suspect]
     Indication: PREOPERATIVE CARE
     Route: 047
     Dates: start: 20070614
  2. OCUFEN [Suspect]
  3. OCUFEN [Suspect]
  4. OFLOXACIN [Suspect]
     Indication: POSTOPERATIVE CARE
     Dates: start: 20070614
  5. CYCLOPENTOLATE HCL [Suspect]
     Indication: PREOPERATIVE CARE
     Dates: start: 20070614
  6. PHENYLEPHRINE [Suspect]
     Indication: PREOPERATIVE CARE
     Dates: start: 20070614
  7. GLYCEROL 2.6% [Suspect]
     Indication: PREOPERATIVE CARE
     Dates: start: 20070614
  8. PROPARACAINE HCL [Suspect]
     Indication: PERIOPERATIVE ANALGESIA
     Dates: start: 20070614
  9. POVIDONE IODINE [Suspect]
     Indication: PREOPERATIVE CARE
     Dates: start: 20070614
  10. BALANCED SALT SOLUTION [Suspect]
     Indication: PREOPERATIVE CARE
     Dates: start: 20070614
  11. LIDOCAINE [Suspect]
     Indication: PERIOPERATIVE ANALGESIA
     Dates: start: 20070614
  12. HYALURONIDASE [Suspect]
     Indication: PERIOPERATIVE ANALGESIA
     Dates: start: 20070614
  13. DEXAMETHASONE 0.5MG TAB [Suspect]
     Indication: POSTOPERATIVE CARE
     Dosage: UNK, UNK
     Route: 047
     Dates: start: 20070614

REACTIONS (1)
  - TOXIC ANTERIOR SEGMENT SYNDROME [None]
